FAERS Safety Report 15411330 (Version 1)
Quarter: 2018Q3

REPORT INFORMATION
  Report Type: Spontaneous
  Country: US (occurrence: US)
  Receive Date: 20180920
  Receipt Date: 20180920
  Transmission Date: 20181010
  Serious: No
  Sender: FDA-Public Use
  Company Number: None

PATIENT
  Age: 49 Year
  Sex: Female
  Weight: 67.05 kg

DRUGS (1)
  1. ROSILLIANCE GOLDEN TINT SPF 30 BROAD SPECTRUM [Suspect]
     Active Substance: TITANIUM DIOXIDE
     Indication: PRODUCT USED FOR UNKNOWN INDICATION
     Dosage: ?          QUANTITY:1 TEASPOON(S);?
     Route: 061
     Dates: start: 20180816, end: 20180817

REACTIONS (1)
  - Application site rash [None]

NARRATIVE: CASE EVENT DATE: 20180816
